FAERS Safety Report 5321944-2 (Version None)
Quarter: 2007Q2

REPORT INFORMATION
  Report Type: 
  Country: None (occurrence: None)
  Receive Date: 20070511
  Receipt Date: 20070504
  Transmission Date: 20071010
  Serious: Yes (Hospitalization)
  Sender: FDA-Public Use
  Company Number: FR-JNJFOC-20070501769

PATIENT
  Age: 50 Year
  Sex: Male

DRUGS (6)
  1. IMODIUM [Suspect]
     Indication: DIARRHOEA
     Route: 048
  2. ALUMINUM HYDROXIDE AND MAGNESIUM TRISILICATE [Suspect]
     Indication: DIARRHOEA
     Route: 048
  3. TIORFAN [Suspect]
     Indication: DIARRHOEA
     Route: 048
  4. ZYPREXA [Concomitant]
  5. DAFALGAN [Concomitant]
  6. DANTRIUM [Concomitant]

REACTIONS (1)
  - FAECALOMA [None]
